FAERS Safety Report 12736067 (Version 1)
Quarter: 2016Q3

REPORT INFORMATION
  Report Type: Spontaneous
  Country: US (occurrence: US)
  Receive Date: 20160913
  Receipt Date: 20160913
  Transmission Date: 20161109
  Serious: Yes (Death)
  Sender: FDA-Public Use
  Company Number: US-ROCHE-1829211

PATIENT
  Age: 59 Year
  Sex: Female

DRUGS (2)
  1. COTELLIC [Concomitant]
     Active Substance: COBIMETINIB
     Indication: METASTASIS
     Dosage: ONCE DAILY X 21 DAYS 7 OFF ; ONGOING
     Route: 048
     Dates: start: 20160226
  2. ZELBORAF [Suspect]
     Active Substance: VEMURAFENIB
     Indication: METASTASIS
     Dosage: EVERY 12 HOURS ; ONGOING, 4 TABLETS
     Route: 048
     Dates: start: 20160224

REACTIONS (1)
  - Death [Fatal]

NARRATIVE: CASE EVENT DATE: 20160827
